FAERS Safety Report 6018973-2 (Version None)
Quarter: 2008Q4

REPORT INFORMATION
  Report Type: 
  Country: None (occurrence: None)
  Receive Date: 20081221
  Receipt Date: 20081221
  Transmission Date: 20090506
  Serious: Yes (Hospitalization)
  Sender: FDA-Public Use
  Company Number: None

PATIENT
  Sex: Female
  Weight: 45 kg

DRUGS (1)
  1. BOTOX [Suspect]
     Indication: SALIVARY HYPERSECRETION
     Dosage: 40 UNITS TO SUBMANDIBULAR ONCE OTHER
     Route: 050
     Dates: start: 20081212, end: 20081212

REACTIONS (5)
  - ASPIRATION [None]
  - DYSPHAGIA [None]
  - HYPOPHAGIA [None]
  - LARYNGEAL DISORDER [None]
  - RETCHING [None]
